FAERS Safety Report 10037852 (Version 3)
Quarter: 2015Q3

REPORT INFORMATION
  Report Type: Spontaneous
  Country: US (occurrence: US)
  Receive Date: 20140326
  Receipt Date: 20150722
  Transmission Date: 20151125
  Serious: Yes (Hospitalization)
  Sender: FDA-Public Use
  Company Number: US-BAYER-2014-043186

PATIENT
  Age: 20 Year
  Sex: Female
  Weight: 75 kg

DRUGS (2)
  1. MIRENA [Suspect]
     Active Substance: LEVONORGESTREL
     Indication: CONTRACEPTION
     Dosage: 20 MCG/24HR, CONT
     Route: 015
     Dates: start: 20100113, end: 20100127
  2. PRENATAL VITAMINS [Concomitant]
     Active Substance: VITAMINS
     Dosage: UNK
     Dates: start: 20100113

REACTIONS (4)
  - Uterine perforation [None]
  - Abdominal pain [None]
  - Injury [None]
  - Device issue [None]

NARRATIVE: CASE EVENT DATE: 201001
